FAERS Safety Report 19877208 (Version 3)
Quarter: 2023Q1

REPORT INFORMATION
  Report Type: Report from Study
  Country: US (occurrence: US)
  Receive Date: 20210924
  Receipt Date: 20230102
  Transmission Date: 20230418
  Serious: No
  Sender: FDA-Public Use
  Company Number: NVSC2021US216561

PATIENT
  Sex: Female

DRUGS (1)
  1. PROMACTA [Suspect]
     Active Substance: ELTROMBOPAG OLAMINE
     Indication: Product used for unknown indication
     Dosage: UNK
     Route: 048

REACTIONS (6)
  - Peripheral swelling [Unknown]
  - Limb injury [Unknown]
  - Drug intolerance [Unknown]
  - Joint swelling [Unknown]
  - Diarrhoea [Unknown]
  - Discontinued product administered [Unknown]
